FAERS Safety Report 10906827 (Version 1)
Quarter: 2015Q1

REPORT INFORMATION
  Report Type: Spontaneous
  Country: US (occurrence: None)
  Receive Date: 20150309
  Receipt Date: 20150309
  Transmission Date: 20150721
  Serious: Yes (Other)
  Sender: FDA-Public Use
  Company Number: 2015COV00042

PATIENT
  Age: 83 Year
  Sex: Female
  Weight: 72.6 kg

DRUGS (3)
  1. PRAZOSIN [Concomitant]
     Active Substance: PRAZOSIN
  2. PLAQUENIL [Suspect]
     Active Substance: HYDROXYCHLOROQUINE SULFATE
     Indication: SYSTEMIC LUPUS ERYTHEMATOSUS
     Dosage: 2 TABLETS, UNK, ORAL
     Route: 048
  3. OTHER UNKNOWN MEDICATIONS [Concomitant]
     Active Substance: UNSPECIFIED INGREDIENT

REACTIONS (9)
  - Liver disorder [None]
  - Cardiac disorder [None]
  - Dysphagia [None]
  - Renal disorder [None]
  - Gastrooesophageal reflux disease [None]
  - Wrong technique in drug usage process [None]
  - Muscle spasms [None]
  - Feeling abnormal [None]
  - Blood cholesterol increased [None]
